FAERS Safety Report 20633434 (Version 1)
Quarter: 2022Q1

REPORT INFORMATION
  Report Type: Spontaneous
  Country: US (occurrence: None)
  Receive Date: 20220324
  Receipt Date: 20220324
  Transmission Date: 20220423
  Serious: No
  Sender: FDA-Public Use
  Company Number: 2022A126124

PATIENT
  Age: 72 Year
  Sex: Male

DRUGS (1)
  1. BYDUREON [Suspect]
     Active Substance: EXENATIDE
     Indication: Type 2 diabetes mellitus
     Dosage: 2MG WEEKLY
     Route: 058
     Dates: start: 2021

REACTIONS (2)
  - Injection site pain [Recovered/Resolved]
  - Wrong technique in product usage process [Recovered/Resolved]

NARRATIVE: CASE EVENT DATE: 20210101
